FAERS Safety Report 4458413-8 (Version None)
Quarter: 2004Q3

REPORT INFORMATION
  Report Type: 
  Country: None (occurrence: None)
  Receive Date: 20040924
  Receipt Date: 20040906
  Transmission Date: 20050211
  Serious: Yes (Hospitalization)
  Sender: FDA-Public Use
  Company Number: ZA-MERCK-0409ZAF00011

PATIENT
  Age: 59 Year
  Sex: Male
  Weight: 80 kg

DRUGS (2)
  1. VIOXX [Suspect]
     Indication: ARTHRITIS
     Route: 048
     Dates: start: 20040808, end: 20040811
  2. VALDECOXIB [Suspect]
     Indication: ARTHRITIS
     Route: 048
     Dates: start: 20040801, end: 20040804

REACTIONS (2)
  - ACUTE CORONARY SYNDROME [None]
  - ARTERIOSPASM CORONARY [None]
